FAERS Safety Report 10182582 (Version 1)
Quarter: 2014Q2

REPORT INFORMATION
  Report Type: Spontaneous
  Country: GB (occurrence: None)
  Receive Date: 20140516
  Receipt Date: 20140516
  Transmission Date: 20141212
  Serious: Yes (Hospitalization)
  Sender: FDA-Public Use
  Company Number: AUR-APL-2014-05592

PATIENT
  Age: 70 Year
  Sex: Female

DRUGS (4)
  1. LEVETIRACETAM [Suspect]
     Indication: PRODUCT USED FOR UNKNOWN INDICATION
  2. EPILIM [Suspect]
     Indication: PRODUCT USED FOR UNKNOWN INDICATION
  3. CLOBAZAM (CLOBAZAM) [Concomitant]
  4. SERTRALINE (SERTRALINE) [Concomitant]

REACTIONS (8)
  - Urinary tract infection [None]
  - Confusional state [None]
  - Fall [None]
  - Somnolence [None]
  - Asthenia [None]
  - Cerebral haemorrhage [None]
  - Overdose [None]
  - Toxicity to various agents [None]
